FAERS Safety Report 6980357-8 (Version None)
Quarter: 2010Q3

REPORT INFORMATION
  Report Type: 
  Country: None (occurrence: None)
  Receive Date: 20100914
  Receipt Date: 20100908
  Transmission Date: 20110219
  Serious: Yes (Death, Hospitalization, Other)
  Sender: FDA-Public Use
  Company Number: DK-BAYER-201032652GPV

PATIENT
  Age: 62 Year
  Sex: Female

DRUGS (17)
  1. SORAFENIB [Suspect]
     Indication: RENAL CELL CARCINOMA
     Dosage: TOTAL DAILY DOSE: 800 MG  UNIT DOSE: 200 MG
     Route: 048
     Dates: start: 20100616, end: 20100630
  2. CIPRALEX [Concomitant]
     Indication: DEPRESSION
  3. PANTOPRAZOLE SODIUM [Concomitant]
     Indication: PROPHYLAXIS
  4. IRBESARTAN [Concomitant]
  5. OXYCODONE HCL [Concomitant]
     Indication: PAIN
  6. PINEX [Concomitant]
     Indication: PAIN
  7. OXYCONTIN [Concomitant]
     Indication: PAIN
  8. EMPERAL [Concomitant]
     Indication: NAUSEA
  9. UNIKALK [Concomitant]
     Indication: VITAMIN SUPPLEMENTATION
  10. ONDANSETRON [Concomitant]
     Indication: NAUSEA
  11. TARGIN [Concomitant]
     Indication: PAIN
  12. PICOLON [Concomitant]
     Indication: CONSTIPATION
  13. ACETYLSALICYLIC ACID [Concomitant]
     Indication: PROPHYLAXIS
  14. MOXALOLE [Concomitant]
     Indication: CONSTIPATION
  15. ACTILAX [Concomitant]
     Indication: CONSTIPATION
  16. MYCOSTATIN [Concomitant]
  17. HJERTEMAGNYL [Concomitant]

REACTIONS (6)
  - ATRIAL FIBRILLATION [None]
  - BLOOD ALKALINE PHOSPHATASE INCREASED [None]
  - HYPONATRAEMIA [None]
  - NAUSEA [None]
  - PAIN [None]
  - RENAL CELL CARCINOMA [None]
